FAERS Safety Report 22244142 (Version 1)
Quarter: 2023Q2

REPORT INFORMATION
  Report Type: Spontaneous
  Country: FR (occurrence: FR)
  Receive Date: 20230424
  Receipt Date: 20230424
  Transmission Date: 20230722
  Serious: Yes (Hospitalization, Other)
  Sender: FDA-Public Use
  Company Number: None

PATIENT
  Age: 40 Year
  Sex: Female
  Weight: 62 kg

DRUGS (3)
  1. OLIMEL E [Suspect]
     Active Substance: AMINO ACIDS\DEXTROSE\ELECTROLYTES NOS\SOYBEAN OIL
     Indication: Parenteral nutrition
     Route: 042
     Dates: start: 20221118, end: 20221120
  2. METRONIDAZOLE [Suspect]
     Active Substance: METRONIDAZOLE
     Indication: Cellulitis
     Route: 042
     Dates: start: 20221117, end: 20221117
  3. CEFOTAXIME [Suspect]
     Active Substance: CEFOTAXIME SODIUM
     Indication: Cellulitis
     Dosage: UNK
     Route: 042
     Dates: start: 20221117, end: 20221119

REACTIONS (1)
  - Acute generalised exanthematous pustulosis [Recovered/Resolved]

NARRATIVE: CASE EVENT DATE: 20221118
